FAERS Safety Report 7557148-2 (Version None)
Quarter: 2011Q2

REPORT INFORMATION
  Report Type: 
  Country: None (occurrence: None)
  Receive Date: 20110620
  Receipt Date: 20110608
  Transmission Date: 20111010
  Serious: Yes (Hospitalization, Other)
  Sender: FDA-Public Use
  Company Number: US-ROCHE-743295

PATIENT
  Sex: Male
  Weight: 102.1 kg

DRUGS (4)
  1. ACCUTANE [Suspect]
     Indication: ACNE
     Route: 065
     Dates: start: 19900101, end: 19900601
  2. ACCUTANE [Suspect]
     Route: 065
     Dates: start: 20051201, end: 20060201
  3. ACCUTANE [Suspect]
     Route: 065
     Dates: start: 19920101
  4. ACCUTANE [Suspect]
     Route: 065
     Dates: start: 20060601, end: 20080201

REACTIONS (8)
  - HAEMORRHOIDS [None]
  - CROHN'S DISEASE [None]
  - INFLAMMATORY BOWEL DISEASE [None]
  - DEPRESSION [None]
  - GASTROINTESTINAL INJURY [None]
  - COLITIS ULCERATIVE [None]
  - ANAL ABSCESS [None]
  - ANAL FISTULA [None]
